FAERS Safety Report 4317372-9 (Version None)
Quarter: 2004Q1

REPORT INFORMATION
  Report Type: 
  Country: None (occurrence: None)
  Receive Date: 20040312
  Receipt Date: 20040305
  Transmission Date: 20041129
  Serious: Yes (Death, Hospitalization, Other)
  Sender: FDA-Public Use
  Company Number: 2004-03-0395

PATIENT
  Age: 40 Year
  Sex: Male

DRUGS (4)
  1. PEG-INTRON [Suspect]
     Indication: HEPATITIS C
     Dosage: SUBCUTANEOUS
     Route: 058
     Dates: start: 20010201, end: 20010601
  2. REBETOL [Suspect]
     Indication: HEPATITIS C
     Dosage: ORAL
     Route: 048
     Dates: start: 20010201, end: 20010601
  3. SUDAFED (PSEUDOEPHEDRINE HCL) [Concomitant]
  4. PROZAC [Concomitant]

REACTIONS (9)
  - ANKLE FRACTURE [None]
  - BRAIN CONTUSION [None]
  - BRAIN HERNIATION [None]
  - BRAIN OEDEMA [None]
  - DRUG SCREEN FALSE POSITIVE [None]
  - HAEMOLYTIC ANAEMIA [None]
  - HEAD INJURY [None]
  - LABORATORY TEST INTERFERENCE [None]
  - ROAD TRAFFIC ACCIDENT [None]
